FAERS Safety Report 10683199 (Version 2)
Quarter: 2015Q1

REPORT INFORMATION
  Report Type: Spontaneous
  Country: US (occurrence: US)
  Receive Date: 20141230
  Receipt Date: 20150209
  Transmission Date: 20150720
  Serious: No
  Sender: FDA-Public Use
  Company Number: US-ELI_LILLY_AND_COMPANY-US201412001832

PATIENT
  Age: 67 Year
  Sex: Male

DRUGS (2)
  1. HUMATROPE [Suspect]
     Active Substance: SOMATROPIN
     Indication: HYPOPITUITARISM
     Dosage: UNK
     Route: 065
     Dates: start: 2000
  2. HUMATROPE [Suspect]
     Active Substance: SOMATROPIN
     Dosage: 0.2 UNK, QD
     Route: 065

REACTIONS (3)
  - Drug dispensed to wrong patient [Unknown]
  - Nasopharyngitis [Unknown]
  - Throat tightness [Unknown]

NARRATIVE: CASE EVENT DATE: 20150106
